FAERS Safety Report 24287224 (Version 1)
Quarter: 2024Q3

REPORT INFORMATION
  Report Type: Other
  Country: CA (occurrence: CA)
  Receive Date: 20240905
  Receipt Date: 20240905
  Transmission Date: 20241016
  Serious: Yes (Other)
  Sender: DENTSPLY
  Company Number: CA-DENTSPLY-2024SCDP000251

PATIENT
  Age: 45 Year
  Sex: Female

DRUGS (1)
  1. LIDOCAINE [Suspect]
     Active Substance: LIDOCAINE
     Indication: Pain management
     Dosage: 15.0 MILLILITER ONCE LIDOCAINE HCL INJECTION (SOLUTION BLOCK/INFILTRATION)
     Route: 030

REACTIONS (2)
  - Ocular discomfort [Recovered/Resolved]
  - Hypoaesthesia oral [Recovered/Resolved]
